FAERS Safety Report 21004228 (Version 2)
Quarter: 2022Q3

REPORT INFORMATION
  Report Type: Spontaneous
  Country: JP (occurrence: JP)
  Receive Date: 20220624
  Receipt Date: 20220711
  Transmission Date: 20221026
  Serious: Yes (Other)
  Sender: FDA-Public Use
  Company Number: JP-GLAXOSMITHKLINE-JP2022JPN095247

PATIENT

DRUGS (13)
  1. SUMATRIPTAN SUCCINATE [Suspect]
     Active Substance: SUMATRIPTAN SUCCINATE
     Indication: Headache
  2. SUMATRIPTAN SUCCINATE [Suspect]
     Active Substance: SUMATRIPTAN SUCCINATE
     Indication: Migraine with aura
  3. PROPYPHENAZONE [Concomitant]
     Active Substance: PROPYPHENAZONE
     Indication: Headache
     Dosage: UNK
  4. PROPYPHENAZONE [Concomitant]
     Active Substance: PROPYPHENAZONE
     Indication: Tension headache
  5. PROPYPHENAZONE [Concomitant]
     Active Substance: PROPYPHENAZONE
     Indication: Migraine with aura
  6. ACETAMINOPHEN [Concomitant]
     Active Substance: ACETAMINOPHEN
     Indication: Headache
     Dosage: UNK
  7. ACETAMINOPHEN [Concomitant]
     Active Substance: ACETAMINOPHEN
     Indication: Tension headache
  8. ACETAMINOPHEN [Concomitant]
     Active Substance: ACETAMINOPHEN
     Indication: Migraine with aura
  9. CAFFEINE [Concomitant]
     Active Substance: CAFFEINE
     Indication: Headache
     Dosage: UNK
  10. CAFFEINE [Concomitant]
     Active Substance: CAFFEINE
     Indication: Tension headache
  11. CAFFEINE [Concomitant]
     Active Substance: CAFFEINE
     Indication: Migraine with aura
  12. VALPROATE SODIUM [Concomitant]
     Active Substance: VALPROATE SODIUM
     Indication: Migraine prophylaxis
     Dosage: UNK
  13. AMITRIPTYLINE HYDROCHLORIDE [Concomitant]
     Active Substance: AMITRIPTYLINE HYDROCHLORIDE
     Indication: Migraine prophylaxis
     Dosage: UNK

REACTIONS (2)
  - Cardiac myxoma [Unknown]
  - Drug ineffective [Unknown]
